FAERS Safety Report 7824476-2 (Version None)
Quarter: 2011Q4

REPORT INFORMATION
  Report Type: 
  Country: None (occurrence: None)
  Receive Date: 20111014
  Receipt Date: 20110928
  Transmission Date: 20120403
  Serious: Yes (Hospitalization)
  Sender: FDA-Public Use
  Company Number: TCI2011A04568

PATIENT
  Sex: Male

DRUGS (7)
  1. METFORMIN HYDROCHLORIDE [Concomitant]
  2. AMARYL [Concomitant]
  3. DIOVAN [Concomitant]
  4. LIPITCR (ATORVASTATIN CALCIUM [Concomitant]
  5. ACTOS [Suspect]
     Indication: DIABETES MELLITUS
     Dosage: 15 MG (15 MG, 1 D) PER ORAL
     Route: 048
     Dates: start: 20060920, end: 20070630
  6. LIPIDIL [Concomitant]
  7. AMLODIPINE BESYLATE [Concomitant]

REACTIONS (3)
  - HAEMATURIA [None]
  - ASPARTATE AMINOTRANSFERASE INCREASED [None]
  - BLADDER CANCER [None]
